FAERS Safety Report 19685405 (Version 1)
Quarter: 2021Q3

REPORT INFORMATION
  Report Type: Spontaneous
  Country: CN (occurrence: CN)
  Receive Date: 20210811
  Receipt Date: 20210811
  Transmission Date: 20211014
  Serious: Yes (Other)
  Sender: FDA-Public Use
  Company Number: CN-PFIZER INC-202100978031

PATIENT
  Age: 7 Year
  Sex: Male
  Weight: 22.8 kg

DRUGS (2)
  1. METHYLPREDNISOLONE. [Suspect]
     Active Substance: METHYLPREDNISOLONE
     Indication: CHRONIC KIDNEY DISEASE
     Dosage: 20 MG, 1X/DAY
     Route: 048
     Dates: start: 20210728
  2. METHYLPREDNISOLONE. [Suspect]
     Active Substance: METHYLPREDNISOLONE
     Indication: NEPHROTIC SYNDROME
     Dosage: 20 MG, 1X/DAY
     Route: 048
     Dates: start: 20171017, end: 20210728

REACTIONS (2)
  - Cataract [Unknown]
  - Refraction disorder [Unknown]

NARRATIVE: CASE EVENT DATE: 20210728
